FAERS Safety Report 9832566 (Version 3)
Quarter: 2014Q1

REPORT INFORMATION
  Report Type: Spontaneous
  Country: FR (occurrence: FR)
  Receive Date: 20140121
  Receipt Date: 20140204
  Transmission Date: 20141002
  Serious: Yes (Hospitalization, Other)
  Sender: FDA-Public Use
  Company Number: FR-UCBSA-110115

PATIENT
  Age: 30 Year
  Sex: Female

DRUGS (2)
  1. KEPPRA [Suspect]
     Indication: EPILEPSY
     Route: 048
  2. NO CONCOMITANT DRUG [Concomitant]

REACTIONS (4)
  - Abortion spontaneous [Recovered/Resolved]
  - Escherichia infection [Recovered/Resolved]
  - Placenta praevia [Unknown]
  - Pregnancy [Recovered/Resolved]
